FAERS Safety Report 10854428 (Version 1)
Quarter: 2015Q1

REPORT INFORMATION
  Report Type: Spontaneous
  Country: GB (occurrence: None)
  Receive Date: 20150218
  Receipt Date: 20150218
  Transmission Date: 20150721
  Serious: Yes (Other)
  Sender: FDA-Public Use
  Company Number: KAD201502-000252

PATIENT
  Age: 72 Year
  Sex: Male

DRUGS (6)
  1. RIBAVIRIN (RIBAVIRIN) [Suspect]
     Active Substance: RIBAVIRIN
     Indication: HEPATITIS C
     Dosage: 400 MG AM, 600 MG PM
     Route: 048
     Dates: start: 20130919, end: 20140821
  2. AMLODIPINE [Concomitant]
     Active Substance: AMLODIPINE BESYLATE
  3. PEGASYS [Suspect]
     Active Substance: PEGINTERFERON ALFA-2A
     Indication: HEPATITIS C
     Route: 058
     Dates: start: 20130919, end: 20140821
  4. BENDROFLUAZIDE (BENDROFLUAZIDE) [Concomitant]
  5. ATENOLOL (ATENOLOL) [Concomitant]
     Active Substance: ATENOLOL
  6. TELAPREVIR (TELAPREVIR) [Suspect]
     Active Substance: TELAPREVIR
     Indication: HEPATITIS C
     Route: 048
     Dates: start: 20130919, end: 20131212

REACTIONS (2)
  - Neuropathy peripheral [None]
  - VIIth nerve paralysis [None]
